FAERS Safety Report 9198801 (Version 6)
Quarter: 2015Q3

REPORT INFORMATION
  Report Type: Report from Study
  Country: JP (occurrence: JP)
  Receive Date: 20130329
  Receipt Date: 20150714
  Transmission Date: 20151125
  Serious: Yes (Hospitalization)
  Sender: FDA-Public Use
  Company Number: JP-009507513-1303JPN013482

PATIENT
  Age: 64 Year
  Sex: Female

DRUGS (21)
  1. ZOLINZA [Suspect]
     Active Substance: VORINOSTAT
     Indication: MYCOSIS FUNGOIDES
     Dosage: 400 MG, QD
     Route: 048
     Dates: start: 20120807, end: 20120904
  2. ZOLINZA [Suspect]
     Active Substance: VORINOSTAT
     Dosage: 300 MG, QD
     Route: 048
     Dates: start: 20121016, end: 20130308
  3. PANTOSIN [Concomitant]
     Active Substance: PANTETHINE
     Indication: CONSTIPATION
     Dosage: 100 MG, BID
     Route: 048
     Dates: end: 20121029
  4. ZOLINZA [Suspect]
     Active Substance: VORINOSTAT
     Dosage: 200 MG, QD
     Route: 048
     Dates: start: 20130611
  5. TAKEPRON [Concomitant]
     Active Substance: LANSOPRAZOLE
     Indication: GASTROOESOPHAGEAL REFLUX DISEASE
     Dosage: 30 MG, QD
     Route: 048
  6. CALBLOCK [Concomitant]
     Active Substance: AZELNIDIPINE
     Indication: HYPERTENSION
     Dosage: 16 MG, QD
     Route: 048
  7. ZOLINZA [Suspect]
     Active Substance: VORINOSTAT
     Dosage: 100 MG, QOD
     Route: 048
     Dates: start: 20130410, end: 20130508
  8. ZOLINZA [Suspect]
     Active Substance: VORINOSTAT
     Dosage: 100 MG, QD
     Route: 048
     Dates: start: 20130509, end: 20130522
  9. PREDNISOLONE. [Suspect]
     Active Substance: PREDNISOLONE
     Dosage: 1 MG, QD
     Route: 048
     Dates: start: 20130413, end: 20130417
  10. PREDNISOLONE. [Suspect]
     Active Substance: PREDNISOLONE
     Indication: MYCOSIS FUNGOIDES
     Dosage: 3 DF, BID; 2 TABLETS IN THE MORNING, 1 TABLET IN THE AFTERNOON
     Route: 048
     Dates: start: 20120524, end: 20120829
  11. PREDNISOLONE. [Suspect]
     Active Substance: PREDNISOLONE
     Dosage: 5 MG, BID
     Route: 048
     Dates: start: 20121121, end: 20130325
  12. JANUVIA [Concomitant]
     Active Substance: SITAGLIPTIN PHOSPHATE
     Indication: DIABETES MELLITUS
     Dosage: 50 MG, QD
     Route: 048
  13. BEZATOL [Concomitant]
     Active Substance: BEZAFIBRATE
     Indication: HYPERLIPIDAEMIA
     Dosage: 200 MG, BID
     Route: 048
     Dates: end: 20120919
  14. PREDNISOLONE. [Suspect]
     Active Substance: PREDNISOLONE
     Dosage: 5 MG, QD
     Route: 048
     Dates: start: 20130329, end: 20130409
  15. PREDNISOLONE. [Suspect]
     Active Substance: PREDNISOLONE
     Dosage: 3 MG, QD
     Route: 048
     Dates: start: 20130410, end: 20130412
  16. ECARD HD [Concomitant]
     Active Substance: CANDESARTAN CILEXETIL\HYDROCHLOROTHIAZIDE
     Indication: HYPERTENSION
     Dosage: 1 DF, QD
     Route: 048
     Dates: end: 20120910
  17. ZOLINZA [Suspect]
     Active Substance: VORINOSTAT
     Dosage: 100 MG AND 200 MG EVERY OTHER DAY
     Route: 048
     Dates: start: 20130523, end: 20130610
  18. PREDNISOLONE. [Suspect]
     Active Substance: PREDNISOLONE
     Dosage: 15 MG, TID
     Route: 048
     Dates: start: 20120830, end: 20121120
  19. PREDNISOLONE. [Suspect]
     Active Substance: PREDNISOLONE
     Dosage: 2.5 MG, QD
     Route: 048
     Dates: start: 20121121, end: 20130328
  20. BAYASPIRIN [Concomitant]
     Active Substance: ASPIRIN
     Indication: PROPHYLAXIS
     Dosage: 100 MG, QD
     Route: 048
  21. XYZAL [Concomitant]
     Active Substance: LEVOCETIRIZINE DIHYDROCHLORIDE
     Indication: MYCOSIS FUNGOIDES
     Dosage: 5 MG, QD
     Route: 048
     Dates: end: 20130522

REACTIONS (12)
  - Dehydration [Recovered/Resolved]
  - Renal disorder [Recovering/Resolving]
  - Pyrexia [Recovered/Resolved]
  - Anaemia [Recovered/Resolved]
  - Hyperuricaemia [Recovering/Resolving]
  - Anaemia [Recovered/Resolved]
  - Hyperkalaemia [Recovered/Resolved]
  - Hypertension [Not Recovered/Not Resolved]
  - Hyperkalaemia [Recovering/Resolving]
  - Nausea [Recovering/Resolving]
  - Platelet count decreased [Recovered/Resolved]
  - Decreased appetite [Recovering/Resolving]

NARRATIVE: CASE EVENT DATE: 20120810
